FAERS Safety Report 15137284 (Version 1)
Quarter: 2018Q3

REPORT INFORMATION
  Report Type: Spontaneous
  Country: US (occurrence: US)
  Receive Date: 20180712
  Receipt Date: 20180712
  Transmission Date: 20181010
  Serious: Yes (Hospitalization)
  Sender: FDA-Public Use
  Company Number: US-VIFOR (INTERNATIONAL) INC.-VIT-2018-06723

PATIENT
  Age: 79 Year
  Sex: Female

DRUGS (11)
  1. AMLODIPINE BESILATE [Concomitant]
     Active Substance: AMLODIPINE BESYLATE
  2. PYRIDOXINE HYDROCHLORIDE. [Concomitant]
     Active Substance: PYRIDOXINE HYDROCHLORIDE
  3. LIPITOR [Concomitant]
     Active Substance: ATORVASTATIN CALCIUM
  4. CALCIUM [Concomitant]
     Active Substance: CALCIUM
  5. COLECALCIFEROL~~CALCIUM CARBONATE [Concomitant]
  6. VELTASSA [Suspect]
     Active Substance: PATIROMER
     Indication: HYPERKALAEMIA
     Route: 048
     Dates: start: 20170207
  7. ACETYLSALICYLIC ACID [Concomitant]
     Active Substance: ASPIRIN
  8. ATORVASTATIN CALCIUM. [Concomitant]
     Active Substance: ATORVASTATIN CALCIUM
  9. HYDROCHLOROTHIAZIDE~~LOSARTAN POTASSIUM [Concomitant]
  10. NORVASC [Concomitant]
     Active Substance: AMLODIPINE BESYLATE
  11. IBRANCE [Concomitant]
     Active Substance: PALBOCICLIB

REACTIONS (1)
  - Fall [Unknown]

NARRATIVE: CASE EVENT DATE: 201806
